FAERS Safety Report 5205491-4 (Version None)
Quarter: 2006Q4

REPORT INFORMATION
  Report Type: 
  Country: None (occurrence: None)
  Receive Date: 20061027
  Receipt Date: 20051108
  Transmission Date: 20070319
  Serious: Yes (Other)
  Sender: FDA-Public Use
  Company Number: HQWYE463909NOV05

PATIENT
  Age: 49 Year
  Sex: Female
  Weight: 58.11 kg

DRUGS (2)
  1. PREMARIN [Suspect]
     Indication: OESTROGEN REPLACEMENT THERAPY
     Dosage: 0.625 MG 1X PER 1 DAY, ORAL
     Route: 048
     Dates: start: 19950101, end: 20051108
  2. SYNTHROID (LEBOTHYROXINE SODIUM) [Concomitant]

REACTIONS (1)
  - VISUAL ACUITY REDUCED TRANSIENTLY [None]
